FAERS Safety Report 22659325 (Version 15)
Quarter: 2025Q4

REPORT INFORMATION
  Report Type: Report from Study
  Country: EU (occurrence: EU)
  Receive Date: 20230630
  Receipt Date: 20251217
  Transmission Date: 20260117
  Serious: Yes (Death, Life-Threatening, Hospitalization, Other)
  Sender: JOHNSON AND JOHNSON
  Company Number: EU-JNJFOC-20230164704

PATIENT
  Age: 72 Year
  Sex: Male
  Weight: 65 kg

DRUGS (33)
  1. BORTEZOMIB [Suspect]
     Active Substance: BORTEZOMIB
     Indication: Plasma cell myeloma
     Dosage: UNK, AS A PART OF FIRST CYCLE OF TREATEMNT
     Route: 058
     Dates: start: 20221117
  2. BORTEZOMIB [Suspect]
     Active Substance: BORTEZOMIB
     Indication: Drug therapy
     Dosage: 3 MG
     Route: 058
     Dates: start: 20230224, end: 20230224
  3. BORTEZOMIB [Suspect]
     Active Substance: BORTEZOMIB
     Dosage: UNK
     Route: 058
     Dates: start: 20221228, end: 20230101
  4. BORTEZOMIB [Suspect]
     Active Substance: BORTEZOMIB
     Dosage: UNK
     Route: 058
     Dates: start: 20230204
  5. BORTEZOMIB [Suspect]
     Active Substance: BORTEZOMIB
     Dosage: 3 MG
     Route: 058
     Dates: start: 20230228, end: 20230228
  6. DARZALEX [Suspect]
     Active Substance: DARATUMUMAB
     Indication: Plasma cell myeloma
     Dosage: UNK, AS A PART OF FIRST CYCLE OF TREATEMNT
     Route: 042
     Dates: start: 20221117
  7. DARZALEX [Suspect]
     Active Substance: DARATUMUMAB
     Indication: Drug therapy
     Route: 042
  8. DARZALEX [Suspect]
     Active Substance: DARATUMUMAB
     Route: 042
  9. DARZALEX [Suspect]
     Active Substance: DARATUMUMAB
     Route: 042
     Dates: start: 20230224, end: 20230224
  10. DARZALEX [Suspect]
     Active Substance: DARATUMUMAB
     Route: 042
     Dates: start: 20230228, end: 20230228
  11. DOXORUBICIN [Suspect]
     Active Substance: DOXORUBICIN
     Indication: Salvage therapy
     Dosage: UNK, AS A PART OF FIRST CYCLE OF TREATEMNT
  12. DOXORUBICIN [Suspect]
     Active Substance: DOXORUBICIN
     Indication: Plasma cell myeloma
     Dates: start: 20221229, end: 20221231
  13. DOXORUBICIN [Suspect]
     Active Substance: DOXORUBICIN
     Indication: Plasma cell myeloma
  14. CYCLOPHOSPHAMIDE [Suspect]
     Active Substance: CYCLOPHOSPHAMIDE
     Indication: Salvage therapy
     Dosage: UNK
     Dates: start: 20221229, end: 20221231
  15. CYCLOPHOSPHAMIDE [Suspect]
     Active Substance: CYCLOPHOSPHAMIDE
     Indication: Plasma cell myeloma
  16. CYCLOPHOSPHAMIDE [Suspect]
     Active Substance: CYCLOPHOSPHAMIDE
     Indication: Plasma cell myeloma
  17. CARFILZOMIB [Suspect]
     Active Substance: CARFILZOMIB
     Indication: Plasma cell myeloma
     Dosage: UNK
  18. CARFILZOMIB [Suspect]
     Active Substance: CARFILZOMIB
  19. DEXAMETHASONE [Suspect]
     Active Substance: DEXAMETHASONE
     Indication: Sepsis
     Dosage: UNK
     Dates: start: 20230320, end: 20230320
  20. DEXAMETHASONE [Suspect]
     Active Substance: DEXAMETHASONE
     Indication: Product used for unknown indication
     Dosage: UNK, AS A PART OF FIRST CYCLE OF TREATEMNT
     Dates: start: 20221117
  21. ETOPOSIDE [Suspect]
     Active Substance: ETOPOSIDE
     Indication: Plasma cell myeloma
  22. ETOPOSIDE [Suspect]
     Active Substance: ETOPOSIDE
  23. MELPHALAN [Suspect]
     Active Substance: MELPHALAN
     Indication: Overdose
     Dosage: 95 MG
     Dates: start: 20230310, end: 20230311
  24. POMALIDOMIDE [Suspect]
     Active Substance: POMALIDOMIDE
     Indication: Product used for unknown indication
     Dosage: UNK, AS A PART OF FIRST CYCLE OF TREATEMNT
     Dates: start: 20221117
  25. POMALIDOMIDE [Suspect]
     Active Substance: POMALIDOMIDE
     Dosage: UNK, AS A PART OF FIRST CYCLE OF TREATEMNT
  26. TECLISTAMAB [Suspect]
     Active Substance: TECLISTAMAB
     Indication: Product used for unknown indication
     Dosage: AFTER CYCLOPHOSPHAMIDE AND DOXORUBICIN ADMINISTRATION
  27. THALIDOMIDE [Suspect]
     Active Substance: THALIDOMIDE
     Indication: Product used for unknown indication
     Dosage: UNK
  28. ACYCLOVIR [Concomitant]
     Active Substance: ACYCLOVIR
     Indication: Sepsis
     Dosage: UNK
     Route: 042
     Dates: start: 20230320, end: 20230322
  29. MEROPENEM [Concomitant]
     Active Substance: MEROPENEM
     Indication: Bacterial infection
     Dosage: UNK
     Route: 042
     Dates: start: 20230321, end: 20230322
  30. MEROPENEM [Concomitant]
     Active Substance: MEROPENEM
     Indication: Sepsis
  31. MEROPENEM [Concomitant]
     Active Substance: MEROPENEM
     Indication: Febrile bone marrow aplasia
  32. PIPERACILLIN [Concomitant]
     Active Substance: PIPERACILLIN
     Indication: Sepsis
     Dosage: UNK
     Route: 042
     Dates: start: 20230320, end: 20230321
  33. TAZOBACTAM [Concomitant]
     Active Substance: TAZOBACTAM
     Indication: Sepsis
     Dosage: UNK
     Route: 042
     Dates: start: 20230320, end: 20230321

REACTIONS (16)
  - Bone marrow failure [Fatal]
  - Bacterial sepsis [Fatal]
  - Sepsis [Fatal]
  - Multiple organ dysfunction syndrome [Fatal]
  - Renal failure [Not Recovered/Not Resolved]
  - Febrile bone marrow aplasia [Recovered/Resolved]
  - Bone marrow failure [Recovered/Resolved]
  - Pulmonary oedema [Recovered/Resolved]
  - Disturbance in attention [Recovered/Resolved]
  - Device related sepsis [Recovered/Resolved]
  - Depressed level of consciousness [Unknown]
  - General physical health deterioration [Unknown]
  - Pneumonia [Unknown]
  - Hypertension [Unknown]
  - Tachypnoea [Recovered/Resolved]
  - Tachycardia [Unknown]

NARRATIVE: CASE EVENT DATE: 20221218
